FAERS Safety Report 15750891 (Version 1)
Quarter: 2018Q4

REPORT INFORMATION
  Report Type: Spontaneous
  Country: US (occurrence: US)
  Receive Date: 20181221
  Receipt Date: 20181221
  Transmission Date: 20190205
  Serious: Yes (Other)
  Sender: FDA-Public Use
  Company Number: US-ASTRAZENECA-2018SF68495

PATIENT
  Age: 71 Year
  Sex: Female
  Weight: 86.2 kg

DRUGS (1)
  1. NEXIUM 24HR [Suspect]
     Active Substance: ESOMEPRAZOLE MAGNESIUM
     Indication: DYSPEPSIA
     Route: 048

REACTIONS (4)
  - Gallbladder abscess [Unknown]
  - Off label use [Not Recovered/Not Resolved]
  - Cholelithiasis [Unknown]
  - Memory impairment [Unknown]
